FAERS Safety Report 11152023 (Version 1)
Quarter: 2015Q2

REPORT INFORMATION
  Report Type: Spontaneous
  Country: CH (occurrence: CH)
  Receive Date: 20150601
  Receipt Date: 20150601
  Transmission Date: 20150821
  Serious: Yes (Death, Hospitalization)
  Sender: FDA-Public Use
  Company Number: CH-PFIZER INC-2015180940

PATIENT
  Age: 82 Year
  Sex: Male

DRUGS (11)
  1. SINTROM [Interacting]
     Active Substance: ACENOCOUMAROL
     Route: 048
     Dates: end: 20150503
  2. AVODART [Concomitant]
     Active Substance: DUTASTERIDE
     Dates: end: 201505
  3. PANTOZOL [Concomitant]
     Active Substance: PANTOPRAZOLE SODIUM
     Dosage: UNK
     Dates: end: 201505
  4. EBIXA [Concomitant]
     Active Substance: MEMANTINE HYDROCHLORIDE
     Dates: end: 201505
  5. RISPERDAL [Concomitant]
     Active Substance: RISPERIDONE
     Dosage: UNK
     Dates: end: 201505
  6. REMERON [Concomitant]
     Active Substance: MIRTAZAPINE
     Dates: end: 201505
  7. SIMVASTATIN. [Concomitant]
     Active Substance: SIMVASTATIN
     Dosage: UNK
     Dates: end: 201505
  8. TAZOBAC [Suspect]
     Active Substance: PIPERACILLIN SODIUM\TAZOBACTAM SODIUM
     Indication: SEPTIC SHOCK
     Dosage: 4.5 G, 3X/DAY
     Route: 051
     Dates: start: 20150425, end: 201505
  9. DIOVAN [Concomitant]
     Active Substance: VALSARTAN
     Dates: end: 201505
  10. TOREM /01036501/ [Concomitant]
     Active Substance: TORSEMIDE
     Dosage: UNK
     Dates: end: 201505
  11. BELOC /00030002/ [Concomitant]
     Dates: end: 201505

REACTIONS (3)
  - Cerebral haematoma [Fatal]
  - Coagulation time prolonged [Fatal]
  - Drug interaction [Fatal]

NARRATIVE: CASE EVENT DATE: 201505
